FAERS Safety Report 22617691 (Version 3)
Quarter: 2024Q3

REPORT INFORMATION
  Report Type: Report from Study
  Country: US (occurrence: US)
  Receive Date: 20230620
  Receipt Date: 20240712
  Transmission Date: 20241016
  Serious: No
  Sender: PIERRE FABRE MEDICAMENT
  Company Number: US-PFM-2022-05925

PATIENT
  Sex: Female

DRUGS (3)
  1. PROPRANOLOL HYDROCHLORIDE [Suspect]
     Active Substance: PROPRANOLOL HYDROCHLORIDE
     Indication: Infantile haemangioma
     Dosage: 0.5 MG/KG/DAY IN TWO DIVIDED DOSES
     Route: 065
  2. PROPRANOLOL HYDROCHLORIDE [Suspect]
     Active Substance: PROPRANOLOL HYDROCHLORIDE
     Dosage: 2 MG/KG/DAY WAS REACHED WITHIN 1 WEEK
     Route: 065
  3. PROPRANOLOL HYDROCHLORIDE [Suspect]
     Active Substance: PROPRANOLOL HYDROCHLORIDE
     Dosage: RESTARTED AFTER BEING HELD FOR 5 WEEKS
     Route: 065

REACTIONS (2)
  - Disease recurrence [Unknown]
  - Haemangioma [Unknown]
